FAERS Safety Report 6549089-4 (Version None)
Quarter: 2010Q1

REPORT INFORMATION
  Report Type: 
  Country: None (occurrence: None)
  Receive Date: 20100125
  Receipt Date: 20100114
  Transmission Date: 20100710
  Serious: Yes (Hospitalization)
  Sender: FDA-Public Use
  Company Number: NG-ROCHE-679647

PATIENT
  Age: 6 Year
  Sex: Male

DRUGS (2)
  1. MEFLOQUINE HYDROCHLORIDE [Suspect]
     Indication: MALARIA
     Route: 048
  2. ARTESUNATE [Suspect]
     Indication: MALARIA
     Route: 048

REACTIONS (1)
  - INTRAVASCULAR HAEMOLYSIS [None]
